FAERS Safety Report 6903955-6 (Version None)
Quarter: 2010Q3

REPORT INFORMATION
  Report Type: 
  Country: None (occurrence: None)
  Receive Date: 20100804
  Receipt Date: 20090209
  Transmission Date: 20110219
  Serious: Yes (Hospitalization, Other)
  Sender: FDA-Public Use
  Company Number: US-PFIZER INC-2008159463

PATIENT
  Sex: Male
  Weight: 85.714 kg

DRUGS (4)
  1. LYRICA [Suspect]
     Indication: NEURALGIA
     Dosage: 75 MG, 2X/DAY
     Dates: start: 20080801
  2. ZOCOR [Concomitant]
  3. PAXIL [Concomitant]
  4. BUSPAR [Concomitant]

REACTIONS (7)
  - BLOOD CORTISOL DECREASED [None]
  - DELIRIUM [None]
  - DIARRHOEA [None]
  - HEADACHE [None]
  - PAIN [None]
  - SOMNOLENCE [None]
  - VISUAL ACUITY REDUCED [None]
